FAERS Safety Report 22318699 (Version 1)
Quarter: 2023Q2

REPORT INFORMATION
  Report Type: Other
  Country: HU (occurrence: HU)
  Receive Date: 20230515
  Receipt Date: 20230515
  Transmission Date: 20230722
  Serious: Yes (Life-Threatening, Hospitalization, Other)
  Sender: FDA-Public Use
  Company Number: None

PATIENT
  Age: 66 Year
  Sex: Female

DRUGS (18)
  1. VANCOMYCIN [Suspect]
     Active Substance: VANCOMYCIN
     Indication: Product used for unknown indication
     Dosage: 500 MG, DAILY
     Route: 042
     Dates: start: 20181203, end: 20181213
  2. MEROPENEM [Suspect]
     Active Substance: MEROPENEM
     Indication: Product used for unknown indication
     Dosage: 1000 MG (2X500 MG)
     Route: 065
     Dates: start: 20181225, end: 20181228
  3. METHYLPREDNISOLONE [Suspect]
     Active Substance: METHYLPREDNISOLONE
     Indication: Rash
     Dosage: 20 MG, QD (FOR 3 DAYS)
     Route: 048
     Dates: start: 20181114
  4. METHYLPREDNISOLONE [Suspect]
     Active Substance: METHYLPREDNISOLONE
     Dosage: 80 MG, UNK (80 MG, FOR 2 DAYS)
     Route: 051
     Dates: start: 20181120
  5. METHYLPREDNISOLONE [Suspect]
     Active Substance: METHYLPREDNISOLONE
     Dosage: UNK
     Route: 065
     Dates: end: 20190121
  6. METHYLPREDNISOLONE [Suspect]
     Active Substance: METHYLPREDNISOLONE
     Dosage: 60 MG, QD (FOR 3 DAYS)
     Route: 065
  7. FOLIC ACID [Suspect]
     Active Substance: FOLIC ACID
     Indication: Product used for unknown indication
     Dosage: UNK
     Route: 065
  8. MOXIFLOXACIN [Suspect]
     Active Substance: MOXIFLOXACIN
     Indication: Product used for unknown indication
     Dosage: 400 MILLIGRAM, QD
     Route: 042
     Dates: start: 20181123, end: 20181127
  9. TEICOPLANIN [Suspect]
     Active Substance: TEICOPLANIN
     Indication: Product used for unknown indication
     Dosage: 800 MG (2X400 MG)
     Route: 042
     Dates: start: 20181222, end: 20181228
  10. CLARITHROMYCIN [Suspect]
     Active Substance: CLARITHROMYCIN
     Indication: Product used for unknown indication
     Dosage: 1000 MG (2X500 MG)
     Route: 048
     Dates: start: 20181120, end: 20181123
  11. FOLIC ACID\IRON POLYMALTOSE [Suspect]
     Active Substance: FOLIC ACID\IRON POLYMALTOSE
     Indication: Iron deficiency anaemia
     Dosage: 2 DF (2X1 DF (TBL))
     Route: 048
     Dates: start: 20181220, end: 20190116
  12. IRON [Suspect]
     Active Substance: IRON
     Indication: Product used for unknown indication
     Dosage: UNK
     Route: 065
  13. CEFTRIAXONE [Suspect]
     Active Substance: CEFTRIAXONE
     Indication: Product used for unknown indication
     Dosage: 2 GRAM, QD
     Route: 042
     Dates: start: 20181203, end: 20181226
  14. ASPIRIN [Suspect]
     Active Substance: ASPIRIN
     Indication: Product used for unknown indication
     Dosage: 100 MG, QD (100 MG, DAILY, 4 TIMES TOTAL)
     Route: 048
     Dates: start: 20181109, end: 20181119
  15. METRONIDAZOLE [Suspect]
     Active Substance: METRONIDAZOLE
     Indication: Product used for unknown indication
     Dosage: 1000 MG, QD (2X 500 MG, DAILY)
     Route: 042
  16. HUMAN IMMUNOGLOBULIN G [Suspect]
     Active Substance: HUMAN IMMUNOGLOBULIN G
     Indication: Product used for unknown indication
     Dosage: UNK
     Route: 065
  17. METHYLPREDNISOLONE SODIUM SUCCINATE [Suspect]
     Active Substance: METHYLPREDNISOLONE SODIUM SUCCINATE
     Indication: Rash
     Dosage: 125 MG
     Route: 051
     Dates: start: 20181207
  18. PENTAGLOBIN [Suspect]
     Active Substance: HUMAN IMMUNOGLOBULIN G
     Indication: Product used for unknown indication
     Dosage: 500 MILLIGRAM/KILOGRAM
     Route: 042
     Dates: start: 20181204, end: 20181207

REACTIONS (7)
  - Skin ulcer [None]
  - Stenotrophomonas infection [None]
  - Disease progression [Unknown]
  - Acinetobacter infection [None]
  - Enterococcal infection [None]
  - Wound infection bacterial [None]
  - Enterococcal infection [None]

NARRATIVE: CASE EVENT DATE: 20181207
